FAERS Safety Report 9375858 (Version 1)
Quarter: 2013Q2

REPORT INFORMATION
  Report Type: Spontaneous
  Country: US (occurrence: US)
  Receive Date: 20130628
  Receipt Date: 20130628
  Transmission Date: 20140414
  Serious: Yes (Hospitalization, Other)
  Sender: FDA-Public Use
  Company Number: US-PFIZER INC-2013191888

PATIENT
  Age: 49 Year
  Sex: 0

DRUGS (8)
  1. LYRICA [Suspect]
     Indication: FIBROMYALGIA
     Dosage: 150 MG, 3X/DAY
     Dates: end: 201303
  2. XANAX [Concomitant]
     Dosage: 25 MG, AS NEEDED
  3. PAXIL [Concomitant]
     Dosage: 40 MG, TWICE DAILY
  4. MAXZIDE [Concomitant]
     Dosage: 37.5 MG, 1/2 DAY
  5. IRON [Concomitant]
     Dosage: UNK
  6. VITAMIN B12 [Concomitant]
     Dosage: UNK
  7. NORCO [Concomitant]
     Dosage: 10/325, 4-6 HRS
  8. ADDERALL [Concomitant]
     Dosage: 10 MG, 3X/DAY

REACTIONS (3)
  - Cardiac disorder [Unknown]
  - Activities of daily living impaired [Unknown]
  - Withdrawal syndrome [Recovered/Resolved]
